FAERS Safety Report 19265735 (Version 1)
Quarter: 2021Q2

REPORT INFORMATION
  Report Type: Spontaneous
  Country: US (occurrence: US)
  Receive Date: 20210517
  Receipt Date: 20210517
  Transmission Date: 20210717
  Serious: No
  Sender: FDA-Public Use
  Company Number: US-EMD SERONO-9209766

PATIENT
  Sex: Female

DRUGS (3)
  1. REBIF [Suspect]
     Active Substance: INTERFERON BETA-1A
     Indication: MULTIPLE SCLEROSIS
     Dosage: REBIF PREFILLED SYRINGE
     Route: 058
     Dates: start: 20030214
  2. REBIF [Suspect]
     Active Substance: INTERFERON BETA-1A
     Dosage: REBIF PRE FILLED SYRINGE
     Route: 058
     Dates: start: 201601
  3. REBIF [Suspect]
     Active Substance: INTERFERON BETA-1A
     Dosage: REBIF PRE FILLED SYRINGE
     Route: 058
     Dates: start: 201609

REACTIONS (5)
  - Injection site mass [Unknown]
  - Influenza like illness [Unknown]
  - Product dose omission issue [Unknown]
  - Injection site rash [Unknown]
  - Needle fatigue [Unknown]
